FAERS Safety Report 10871003 (Version 9)
Quarter: 2016Q1

REPORT INFORMATION
  Report Type: Spontaneous
  Country: US (occurrence: US)
  Receive Date: 20150226
  Receipt Date: 20160201
  Transmission Date: 20160525
  Serious: Yes (Hospitalization)
  Sender: FDA-Public Use
  Company Number: US-ACTELION-A-US2015-112929

PATIENT
  Age: 46 Year
  Sex: Female

DRUGS (2)
  1. VELETRI [Suspect]
     Active Substance: EPOPROSTENOL
     Indication: PULMONARY ARTERIAL HYPERTENSION
     Dosage: 14 NG/KG, PER MIN
     Route: 042
     Dates: start: 20130916
  2. VELETRI [Suspect]
     Active Substance: EPOPROSTENOL
     Dosage: 14 NG/KG, PER MIN
     Route: 042

REACTIONS (23)
  - Catheter placement [Unknown]
  - Back pain [Unknown]
  - Nausea [Unknown]
  - Pyrexia [Unknown]
  - Migraine [Unknown]
  - Condition aggravated [Unknown]
  - Headache [Unknown]
  - Asthenia [Unknown]
  - Catheter site pain [Unknown]
  - Gastroenteritis viral [Unknown]
  - Rash generalised [Unknown]
  - Therapy cessation [Unknown]
  - Hot flush [Unknown]
  - Pain [Unknown]
  - Renal disorder [Unknown]
  - Chills [Unknown]
  - Dyspnoea [Unknown]
  - Drug withdrawal syndrome [Unknown]
  - Vomiting [Unknown]
  - Blood potassium decreased [Unknown]
  - Diarrhoea [Unknown]
  - Chest pain [Unknown]
  - Alopecia [Unknown]
